FAERS Safety Report 9384649 (Version 1)
Quarter: 2013Q3

REPORT INFORMATION
  Report Type: Spontaneous
  Country: US (occurrence: US)
  Receive Date: 20130705
  Receipt Date: 20130705
  Transmission Date: 20140515
  Serious: Yes (Other)
  Sender: FDA-Public Use
  Company Number: US-PFIZER INC-2013198170

PATIENT
  Age: 58 Year
  Sex: Female
  Weight: 90.7 kg

DRUGS (6)
  1. NEURONTIN [Suspect]
     Indication: NEUROPATHY PERIPHERAL
     Dosage: 300 MG, 2X/DAY
     Route: 048
  2. LYRICA [Suspect]
     Indication: NEUROPATHY PERIPHERAL
     Dosage: 25 MG, 2X/DAY
     Route: 048
     Dates: start: 2010
  3. LYRICA [Suspect]
     Dosage: 200 MG IN THE MORNING AND 75 MG AT NIGHT
     Route: 048
     Dates: start: 20130613
  4. LYRICA [Suspect]
     Dosage: 50 MG, UNK
     Route: 048
  5. LYRICA [Suspect]
     Dosage: 200MG IN MORNING AND 75M IN NIGHT
  6. METFORMIN [Concomitant]
     Indication: BLOOD GLUCOSE INCREASED
     Dosage: 500 MG, 2X/DAY

REACTIONS (6)
  - Abasia [Unknown]
  - Drug ineffective [Unknown]
  - Crying [Unknown]
  - Burning sensation [Unknown]
  - Pain [Unknown]
  - Pain in extremity [Unknown]
